FAERS Safety Report 18922583 (Version 1)
Quarter: 2021Q1

REPORT INFORMATION
  Report Type: Spontaneous
  Country: US (occurrence: US)
  Receive Date: 20210222
  Receipt Date: 20210222
  Transmission Date: 20210420
  Serious: Yes (Hospitalization, Other)
  Sender: FDA-Public Use
  Company Number: US-HIKMA PHARMACEUTICALS USA INC.-US-H14001-21-53672

PATIENT
  Age: 66 Year
  Sex: Male

DRUGS (8)
  1. FLUOXETINE [Concomitant]
     Active Substance: FLUOXETINE HYDROCHLORIDE
     Indication: MAJOR DEPRESSION
  2. LORAZEPAM. [Suspect]
     Active Substance: LORAZEPAM
     Indication: MAJOR DEPRESSION
     Route: 065
  3. LEVETIRACETAM. [Concomitant]
     Active Substance: LEVETIRACETAM
     Indication: MAJOR DEPRESSION
     Route: 065
  4. LEVETIRACETAM. [Concomitant]
     Active Substance: LEVETIRACETAM
     Indication: MAJOR DEPRESSION
  5. LORAZEPAM. [Suspect]
     Active Substance: LORAZEPAM
     Indication: MAJOR DEPRESSION
     Dosage: EVERY EVENING
  6. FLUOXETINE [Concomitant]
     Active Substance: FLUOXETINE HYDROCHLORIDE
     Indication: MAJOR DEPRESSION
     Route: 065
  7. ZONISAMIDE. [Concomitant]
     Active Substance: ZONISAMIDE
     Indication: MAJOR DEPRESSION
  8. ZONISAMIDE. [Concomitant]
     Active Substance: ZONISAMIDE
     Indication: MAJOR DEPRESSION
     Route: 065

REACTIONS (2)
  - Condition aggravated [Unknown]
  - Cognitive disorder [Unknown]
